FAERS Safety Report 6918631-3 (Version None)
Quarter: 2010Q3

REPORT INFORMATION
  Report Type: 
  Country: None (occurrence: None)
  Receive Date: 20100811
  Receipt Date: 20100730
  Transmission Date: 20110219
  Serious: Yes (Hospitalization)
  Sender: FDA-Public Use
  Company Number: FR-PFIZER INC-2010098390

PATIENT
  Age: 83 Year
  Sex: Male

DRUGS (8)
  1. ATARAX [Suspect]
     Indication: PSYCHOMOTOR HYPERACTIVITY
     Dosage: 50 MG, AT NIGHT
     Route: 048
     Dates: end: 20100302
  2. RISPERDAL [Suspect]
     Indication: PSYCHOMOTOR HYPERACTIVITY
     Dosage: UNK
     Route: 048
     Dates: end: 20100302
  3. EQUANIL [Concomitant]
     Dosage: 250MG THREE UNITS PER DAY AND 400MG AT NIGHT
  4. NEXIUM [Concomitant]
     Dosage: 20 MG, IN THE MORNING
  5. CANDESARTAN CILEXETIL [Concomitant]
     Dosage: 8 MG, IN THE MORNING
  6. EMOLLIENTS AND PROTECTIVES [Concomitant]
  7. IMMUGRIP [Concomitant]
     Dosage: UNK
     Dates: start: 20091101, end: 20091201
  8. PNEUMOCOCCAL VACCINE [Concomitant]
     Dosage: DOSAGE WAS IN NOV2009 AND DEC2009
     Dates: start: 20091101, end: 20091201

REACTIONS (2)
  - CONFUSIONAL STATE [None]
  - VITAMIN D DEFICIENCY [None]
